FAERS Safety Report 11793162 (Version 2)
Quarter: 2016Q3

REPORT INFORMATION
  Report Type: Spontaneous
  Country: US (occurrence: US)
  Receive Date: 20151202
  Receipt Date: 20160805
  Transmission Date: 20161109
  Serious: Yes (Other)
  Sender: FDA-Public Use
  Company Number: US-BAYER-2015-478156

PATIENT
  Age: 30 Year
  Sex: Female

DRUGS (2)
  1. MIRENA [Suspect]
     Active Substance: LEVONORGESTREL
     Indication: CONTRACEPTION
     Dosage: 20 MCG/24HR, CONT
     Route: 015
     Dates: start: 20100713, end: 20140401
  2. INDOCIN [Concomitant]
     Active Substance: INDOMETHACIN\INDOMETHACIN SODIUM
     Dosage: 25 MG, TID

REACTIONS (7)
  - Neck pain [None]
  - Vision blurred [None]
  - Diplopia [None]
  - Papilloedema [None]
  - Memory impairment [None]
  - Tension headache [None]
  - Benign intracranial hypertension [None]

NARRATIVE: CASE EVENT DATE: 20140214
